FAERS Safety Report 12498417 (Version 1)
Quarter: 2016Q2

REPORT INFORMATION
  Report Type: Report from Study
  Country: FR (occurrence: FR)
  Receive Date: 20160627
  Receipt Date: 20160627
  Transmission Date: 20160815
  Serious: Yes (Hospitalization)
  Sender: FDA-Public Use
  Company Number: FR-ROCHE-1594152

PATIENT
  Age: 9 Year
  Sex: Female
  Weight: 31.6 kg

DRUGS (2)
  1. SOMATROPIN [Suspect]
     Active Substance: SOMATROPIN
     Indication: TURNER^S SYNDROME
     Dosage: 10 MG / 2 ML
     Route: 058
     Dates: start: 20140416
  2. SOMATROPIN [Suspect]
     Active Substance: SOMATROPIN
     Route: 058

REACTIONS (3)
  - Gait disturbance [Unknown]
  - Arthralgia [Unknown]
  - Epiphysiolysis [Not Recovered/Not Resolved]

NARRATIVE: CASE EVENT DATE: 201504
